FAERS Safety Report 8601551-6 (Version None)
Quarter: 2012Q3

REPORT INFORMATION
  Report Type: 
  Country: None (occurrence: None)
  Receive Date: 20120817
  Receipt Date: 20111109
  Transmission Date: 20120928
  Serious: No
  Sender: FDA-Public Use
  Company Number: US-BRISTOL-MYERS SQUIBB COMPANY-16222010

PATIENT
  Age: 67 Year
  Sex: Male

DRUGS (2)
  1. SERTRALINE HYDROCHLORIDE [Concomitant]
  2. SPRYCEL [Suspect]
     Indication: CHRONIC MYELOID LEUKAEMIA
     Dosage: PRESCRIPTION NUMBER: 800435
     Dates: start: 20110701

REACTIONS (2)
  - DYSPEPSIA [None]
  - HEADACHE [None]
